FAERS Safety Report 6693639-4 (Version None)
Quarter: 2010Q2

REPORT INFORMATION
  Report Type: 
  Country: None (occurrence: None)
  Receive Date: 20100423
  Receipt Date: 20100413
  Transmission Date: 20101027
  Serious: Yes (Hospitalization, Other)
  Sender: FDA-Public Use
  Company Number: US-BAYER-201012479NA

PATIENT
  Age: 39 Year
  Sex: Female
  Weight: 106 kg

DRUGS (22)
  1. YAZ [Suspect]
     Indication: ORAL CONTRACEPTION
     Dosage: 1 DF
     Route: 048
     Dates: start: 20060701, end: 20080801
  2. YASMIN [Suspect]
     Indication: ORAL CONTRACEPTION
     Route: 048
     Dates: start: 20070901, end: 20080801
  3. AZOR [Concomitant]
     Indication: HYPERTENSION
  4. LEXAPRO [Concomitant]
     Indication: PANIC ATTACK
  5. DURADRIN [Concomitant]
  6. DICYCLOMINE [Concomitant]
  7. OXYCODONE HCL [Concomitant]
  8. AVELOX [Concomitant]
  9. AMLODIPINE [Concomitant]
  10. PROMETHAZINE [Concomitant]
  11. TRAMADOL HCL [Concomitant]
  12. ONDANSETRON [Concomitant]
  13. TRIMETHOPRIM [Concomitant]
  14. BUSPIRONE HCL [Concomitant]
  15. ATENOLOL [Concomitant]
  16. NAPROXEN [Concomitant]
  17. LORATADINE [Concomitant]
  18. PROVENTIL-HFA [Concomitant]
  19. FLUCONAZOLE [Concomitant]
  20. CLINDAMYCIN [Concomitant]
  21. NITROFURANTOIN MONOHYDRATE/MACROCRYSTALS [Concomitant]
  22. DICLOFENAC [Concomitant]

REACTIONS (5)
  - BACK PAIN [None]
  - CHOLECYSTITIS CHRONIC [None]
  - CHOLELITHIASIS [None]
  - DYSPEPSIA [None]
  - NAUSEA [None]
